FAERS Safety Report 14685489 (Version 3)
Quarter: 2018Q2

REPORT INFORMATION
  Report Type: Report from Study
  Country: US (occurrence: US)
  Receive Date: 20180327
  Receipt Date: 20180424
  Transmission Date: 20180711
  Serious: Yes (Other)
  Sender: FDA-Public Use
  Company Number: US-GILEAD-2018-0328436

PATIENT
  Age: 78 Year
  Sex: Female
  Weight: 110.2 kg

DRUGS (2)
  1. AMBRISENTAN [Suspect]
     Active Substance: AMBRISENTAN
     Indication: CONNECTIVE TISSUE DISORDER
     Dosage: 5 MG, UNK
     Route: 065
  2. AMBRISENTAN [Suspect]
     Active Substance: AMBRISENTAN
     Indication: PULMONARY ARTERIAL HYPERTENSION
     Dosage: 10 MG, UNK
     Route: 065

REACTIONS (6)
  - Interstitial lung disease [Unknown]
  - Mobility decreased [Not Recovered/Not Resolved]
  - Intentional product misuse [Unknown]
  - Disturbance in attention [Not Recovered/Not Resolved]
  - Disease progression [Unknown]
  - Product use issue [Not Recovered/Not Resolved]
